FAERS Safety Report 8180081-2 (Version None)
Quarter: 2012Q1

REPORT INFORMATION
  Report Type: 
  Country: None (occurrence: None)
  Receive Date: 20120302
  Receipt Date: 20120302
  Transmission Date: 20120608
  Serious: Yes (Other)
  Sender: FDA-Public Use
  Company Number: None

PATIENT
  Sex: Female
  Weight: 108.86 kg

DRUGS (1)
  1. VICTOZA [Suspect]
     Indication: DIABETES MELLITUS
     Dosage: 5 TO  10
     Route: 023
     Dates: start: 20100101, end: 20100915

REACTIONS (8)
  - BLOOD GLUCOSE DECREASED [None]
  - DIARRHOEA [None]
  - ABDOMINAL DISCOMFORT [None]
  - PSYCHOTIC DISORDER [None]
  - CONSTIPATION [None]
  - MENOPAUSE [None]
  - INSOMNIA [None]
  - PARTNER STRESS [None]
